FAERS Safety Report 4525129-9 (Version None)
Quarter: 2004Q4

REPORT INFORMATION
  Report Type: 
  Country: None (occurrence: None)
  Receive Date: 20041116
  Receipt Date: 20040720
  Transmission Date: 20050328
  Serious: No
  Sender: FDA-Public Use
  Company Number: S04-USA-04869-01

PATIENT
  Age: 89 Year
  Sex: Male

DRUGS (7)
  1. NAMENDA [Suspect]
     Indication: DEMENTIA ALZHEIMER'S TYPE
     Dosage: 10 MG QD PO
     Route: 048
     Dates: start: 20040408, end: 20040414
  2. NAMENDA [Suspect]
     Indication: DEMENTIA ALZHEIMER'S TYPE
     Dosage: 5 MG QD PO
     Route: 048
     Dates: start: 20040401, end: 20040407
  3. NAMENDA [Suspect]
     Indication: DEMENTIA ALZHEIMER'S TYPE
     Dosage: 15 MG QD PO
     Route: 048
     Dates: start: 20040415, end: 20040421
  4. ARICEPT [Concomitant]
  5. SINEMET [Concomitant]
  6. DARVOCET-N 100 [Concomitant]
  7. LEXAPRO [Concomitant]

REACTIONS (1)
  - DISORIENTATION [None]
